FAERS Safety Report 4791328-4 (Version None)
Quarter: 2005Q4

REPORT INFORMATION
  Report Type: 
  Country: None (occurrence: None)
  Receive Date: 20051007
  Receipt Date: 20050928
  Transmission Date: 20060501
  Serious: Yes (Other)
  Sender: FDA-Public Use
  Company Number: US-JNJFOC-20050906814

PATIENT
  Sex: Female
  Weight: 70.31 kg

DRUGS (1)
  1. REMICADE [Suspect]
     Dosage: 7 VIALS
     Route: 042

REACTIONS (2)
  - INFUSION RELATED REACTION [None]
  - SHOCK [None]
